FAERS Safety Report 14211184 (Version 1)
Quarter: 2017Q4

REPORT INFORMATION
  Report Type: Spontaneous
  Country: US (occurrence: None)
  Receive Date: 20171121
  Receipt Date: 20171121
  Transmission Date: 20180321
  Serious: Yes (Death)
  Sender: FDA-Public Use
  Company Number: None

PATIENT
  Age: 35 Year
  Sex: Male
  Weight: 81.65 kg

DRUGS (1)
  1. GABAPENTIN. [Suspect]
     Active Substance: GABAPENTIN
     Indication: HYPERSENSITIVITY
     Dosage: 1 3X A DAY MOUTH
     Route: 048
     Dates: start: 201610

REACTIONS (5)
  - Depression [None]
  - Psychotic disorder [None]
  - Seizure [None]
  - Peripheral swelling [None]
  - Rash [None]
